FAERS Safety Report 6427189-7 (Version None)
Quarter: 2009Q4

REPORT INFORMATION
  Report Type: 
  Country: None (occurrence: None)
  Receive Date: 20091030
  Receipt Date: 20091021
  Transmission Date: 20100525
  Serious: Yes (Death)
  Sender: FDA-Public Use
  Company Number: RENA-1000552

PATIENT
  Age: 73 Year
  Sex: Female

DRUGS (25)
  1. RENVELA [Suspect]
     Indication: HYPERPHOSPHATAEMIA
     Dosage: 2.4 G, TID, ORAL; 0.8 G, BID, ORAL
     Route: 048
     Dates: start: 20081101, end: 20090901
  2. NEURONTIN [Concomitant]
  3. CLARITIN (LORATADINE) UNKNOWN [Concomitant]
  4. AMIODARONE (AMIODARONE HYDROCHLORIDE) UNKNOWN [Concomitant]
  5. ADVAIR (FLUTICASONE PROPIONATE, SALMETEROL XINAFOATE) UNKNOWN [Concomitant]
  6. ASPIRIN [Concomitant]
  7. ROPINIROLE [Concomitant]
  8. NEPHROCAPS (FOLIC ACID, VITAMINS NOS) UNKNOWN [Concomitant]
  9. SYNTHROID [Concomitant]
  10. EPOGEN (EPOETIN ALFA) UNKNOWN [Concomitant]
  11. VENOFER (SACCHARATED IRON OXIDE) UNKNOWN [Concomitant]
  12. ZEMPLAR (PARICALCITOL) UNKNOWN [Concomitant]
  13. LANTUS [Concomitant]
  14. TRAMADOL HCL [Concomitant]
  15. LORAZEPAM [Concomitant]
  16. SENSIPAR (CINACALCET HYDROCHLORIDE) UNKNOWN [Concomitant]
  17. ALBUTEROL (SALBUTAMOL SULFATE) UNKNOWN [Concomitant]
  18. HUMIRA (ADALIMUMAB) UNKNOWN [Concomitant]
  19. COUMADIN [Concomitant]
  20. DIGOXIN [Concomitant]
  21. METOPROLOL TARTRATE [Concomitant]
  22. PRIMIDONE (PRIMIDONE) UNKNOWN [Concomitant]
  23. ERGOCALCIFEROL (ERGOCALCIFEROL) UNKNOWN [Concomitant]
  24. ALLOPURINOL [Concomitant]
  25. NITROFURANTOIN (NITROFURANTOIN) UNKNOWN [Concomitant]

REACTIONS (2)
  - CARDIAC ARREST [None]
  - HYPERKALAEMIA [None]
